FAERS Safety Report 8205507-7 (Version None)
Quarter: 2012Q1

REPORT INFORMATION
  Report Type: 
  Country: None (occurrence: None)
  Receive Date: 20120313
  Receipt Date: 20111213
  Transmission Date: 20120608
  Serious: Yes (Other)
  Sender: FDA-Public Use
  Company Number: PHHY2011KR115771

PATIENT
  Sex: Male
  Weight: 48 kg

DRUGS (1)
  1. EXJADE [Suspect]
     Indication: IRON OVERLOAD
     Dosage: 1000 MG, UNK
     Route: 048
     Dates: start: 20100331

REACTIONS (1)
  - HAEMOGLOBIN DECREASED [None]
